FAERS Safety Report 24554582 (Version 5)
Quarter: 2025Q1

REPORT INFORMATION
  Report Type: Report from Study
  Country: CA (occurrence: CA)
  Receive Date: 20241028
  Receipt Date: 20250210
  Transmission Date: 20250408
  Serious: Yes (Other)
  Sender: TAKEDA
  Company Number: CA-TAKEDA-2024TUS107456

PATIENT
  Sex: Female

DRUGS (11)
  1. VEDOLIZUMAB [Suspect]
     Active Substance: VEDOLIZUMAB
     Indication: Colitis ulcerative
  2. VEDOLIZUMAB [Suspect]
     Active Substance: VEDOLIZUMAB
  3. PERINDOPRIL [Concomitant]
     Active Substance: PERINDOPRIL
  4. DILTIAZEM [Concomitant]
     Active Substance: DILTIAZEM
  5. OZEMPIC [Concomitant]
     Active Substance: SEMAGLUTIDE
  6. PREDNISONE [Concomitant]
     Active Substance: PREDNISONE
  7. PREDNISONE [Concomitant]
     Active Substance: PREDNISONE
  8. SULFASALAZINE [Concomitant]
     Active Substance: SULFASALAZINE
  9. BUDESONIDE [Concomitant]
     Active Substance: BUDESONIDE
  10. VENTOLIN [Concomitant]
     Active Substance: ALBUTEROL SULFATE
  11. FLUTICASONE [Concomitant]
     Active Substance: FLUTICASONE
     Dosage: UNK UNK, BID

REACTIONS (3)
  - Pneumonia [Recovering/Resolving]
  - Therapeutic response decreased [Unknown]
  - Frequent bowel movements [Not Recovered/Not Resolved]
